FAERS Safety Report 9996609 (Version 1)
Quarter: 2014Q1

REPORT INFORMATION
  Report Type: Spontaneous
  Country: DE (occurrence: DE)
  Receive Date: 20140311
  Receipt Date: 20140311
  Transmission Date: 20141002
  Serious: Yes (Other)
  Sender: FDA-Public Use
  Company Number: DE-SA-2014SA028302

PATIENT
  Sex: Female

DRUGS (7)
  1. MOLSIDOMINE [Suspect]
     Indication: CORONARY ARTERY DISEASE
     Route: 048
  2. CLOPIDOGREL BISULFATE [Suspect]
     Indication: THROMBOSIS PROPHYLAXIS
     Route: 048
  3. RAMIPRIL [Suspect]
     Indication: HYPERTENSION
     Route: 048
  4. HERZ ASS [Concomitant]
     Indication: THROMBOSIS PROPHYLAXIS
     Route: 048
  5. SIMVASTATIN [Concomitant]
     Indication: HYPERLIPIDAEMIA
  6. OMEPRAZOLE [Concomitant]
     Indication: GASTRITIS PROPHYLAXIS
     Route: 048
  7. METOPROLOL [Concomitant]
     Indication: HYPERTENSION
     Route: 048

REACTIONS (2)
  - Abortion missed [Recovered/Resolved]
  - Exposure during pregnancy [Recovered/Resolved]
